FAERS Safety Report 5089586-4 (Version None)
Quarter: 2006Q3

REPORT INFORMATION
  Report Type: 
  Country: None (occurrence: None)
  Receive Date: 20060727
  Receipt Date: 20060627
  Transmission Date: 20061208
  Serious: Yes (Hospitalization)
  Sender: FDA-Public Use
  Company Number: 2006066804

PATIENT
  Age: 88 Year
  Sex: Female

DRUGS (1)
  1. LYRICA [Suspect]
     Indication: BACK PAIN
     Dosage: 100 MG (50 MG 2 IN 1 D) ORAL
     Route: 048
     Dates: start: 20060518, end: 20060501

REACTIONS (1)
  - HALLUCINATION [None]
